FAERS Safety Report 18392433 (Version 2)
Quarter: 2020Q4

REPORT INFORMATION
  Report Type: Spontaneous
  Country: US (occurrence: US)
  Receive Date: 20201016
  Receipt Date: 20201021
  Transmission Date: 20210114
  Serious: No
  Sender: FDA-Public Use
  Company Number: NVSC2020US274126

PATIENT
  Sex: Female

DRUGS (1)
  1. TRILEPTAL [Suspect]
     Active Substance: OXCARBAZEPINE
     Indication: TRIGEMINAL NEURALGIA
     Dosage: UNK
     Route: 065
     Dates: start: 201801

REACTIONS (5)
  - Pain [Unknown]
  - Paraesthesia [Unknown]
  - Hyponatraemia [Not Recovered/Not Resolved]
  - Vitamin D deficiency [Unknown]
  - Throat irritation [Not Recovered/Not Resolved]
